FAERS Safety Report 11987519 (Version 1)
Quarter: 2016Q1

REPORT INFORMATION
  Report Type: Spontaneous
  Country: US (occurrence: US)
  Receive Date: 20160202
  Receipt Date: 20160202
  Transmission Date: 20160526
  Serious: Yes (Other)
  Sender: FDA-Public Use
  Company Number: US-PFIZER INC-2016036720

PATIENT
  Age: 35 Year
  Sex: Female

DRUGS (1)
  1. CHAPSTICK TOTAL HYDRATION NATURAL [Suspect]
     Active Substance: COSMETICS
     Dosage: UNK, AS NEEDED
     Route: 061
     Dates: start: 20160114, end: 20160121

REACTIONS (3)
  - Application site pruritus [Recovered/Resolved]
  - Product quality issue [Recovered/Resolved]
  - Product contamination physical [None]

NARRATIVE: CASE EVENT DATE: 20160114
